FAERS Safety Report 6495615-3 (Version None)
Quarter: 2009Q4

REPORT INFORMATION
  Report Type: 
  Country: None (occurrence: None)
  Receive Date: 20091214
  Receipt Date: 20090723
  Transmission Date: 20100525
  Serious: No
  Sender: FDA-Public Use
  Company Number: US-BRISTOL-MYERS SQUIBB COMPANY-14713960

PATIENT
  Age: 36 Year
  Sex: Male
  Weight: 82 kg

DRUGS (6)
  1. ABILIFY [Suspect]
     Indication: BIPOLAR DISORDER
     Dosage: ABOUT 3 MONTHS AGO
     Route: 048
     Dates: start: 20090101
  2. SYNTHROID [Concomitant]
  3. CELEXA [Concomitant]
  4. TRAZODONE HCL [Concomitant]
     Route: 048
  5. NORVASC [Concomitant]
  6. LISINOPRIL [Concomitant]

REACTIONS (1)
  - DYSKINESIA [None]
